FAERS Safety Report 9671008 (Version 1)
Quarter: 2013Q4

REPORT INFORMATION
  Report Type: Spontaneous
  Country: US (occurrence: US)
  Receive Date: 20131106
  Receipt Date: 20131106
  Transmission Date: 20140711
  Serious: Yes (Other)
  Sender: FDA-Public Use
  Company Number: US-ROCHE-1298818

PATIENT
  Age: 35 Year
  Sex: Female

DRUGS (1)
  1. XOLAIR [Suspect]
     Indication: ASTHMA
     Route: 058
     Dates: start: 20130831, end: 20131028

REACTIONS (4)
  - Hypertension [Recovered/Resolved]
  - Arthralgia [Recovered/Resolved]
  - Blood creatinine increased [Unknown]
  - Immune system disorder [Unknown]
